FAERS Safety Report 4732428-4 (Version None)
Quarter: 2005Q3

REPORT INFORMATION
  Report Type: 
  Country: None (occurrence: None)
  Receive Date: 20050801
  Receipt Date: 20050720
  Transmission Date: 20060218
  Serious: Yes (Other)
  Sender: FDA-Public Use
  Company Number: HQ3779215AUG2002

PATIENT
  Age: 47 Year
  Sex: Male
  Weight: 81.72 kg

DRUGS (31)
  1. EFFEXOR XR [Suspect]
     Indication: AGITATION
     Dosage: SEE IMAGE
     Route: 048
     Dates: start: 20020101, end: 20020101
  2. EFFEXOR XR [Suspect]
     Indication: ANXIETY
     Dosage: SEE IMAGE
     Route: 048
     Dates: start: 20020101, end: 20020101
  3. EFFEXOR XR [Suspect]
     Indication: TEMPOROMANDIBULAR JOINT SYNDROME
     Dosage: SEE IMAGE
     Route: 048
     Dates: start: 20020101, end: 20020101
  4. EFFEXOR XR [Suspect]
     Indication: TINNITUS
     Dosage: SEE IMAGE
     Route: 048
     Dates: start: 20020101, end: 20020101
  5. EFFEXOR XR [Suspect]
     Indication: AGITATION
     Dosage: SEE IMAGE
     Route: 048
     Dates: start: 20020101, end: 20020101
  6. EFFEXOR XR [Suspect]
     Indication: ANXIETY
     Dosage: SEE IMAGE
     Route: 048
     Dates: start: 20020101, end: 20020101
  7. EFFEXOR XR [Suspect]
     Indication: TEMPOROMANDIBULAR JOINT SYNDROME
     Dosage: SEE IMAGE
     Route: 048
     Dates: start: 20020101, end: 20020101
  8. EFFEXOR XR [Suspect]
     Indication: TINNITUS
     Dosage: SEE IMAGE
     Route: 048
     Dates: start: 20020101, end: 20020101
  9. EFFEXOR XR [Suspect]
     Indication: AGITATION
     Dosage: SEE IMAGE
     Route: 048
     Dates: start: 20020101, end: 20020101
  10. EFFEXOR XR [Suspect]
     Indication: ANXIETY
     Dosage: SEE IMAGE
     Route: 048
     Dates: start: 20020101, end: 20020101
  11. EFFEXOR XR [Suspect]
     Indication: TEMPOROMANDIBULAR JOINT SYNDROME
     Dosage: SEE IMAGE
     Route: 048
     Dates: start: 20020101, end: 20020101
  12. EFFEXOR XR [Suspect]
     Indication: TINNITUS
     Dosage: SEE IMAGE
     Route: 048
     Dates: start: 20020101, end: 20020101
  13. EFFEXOR XR [Suspect]
     Indication: AGITATION
     Dosage: SEE IMAGE
     Route: 048
     Dates: start: 20020101, end: 20020101
  14. EFFEXOR XR [Suspect]
     Indication: ANXIETY
     Dosage: SEE IMAGE
     Route: 048
     Dates: start: 20020101, end: 20020101
  15. EFFEXOR XR [Suspect]
     Indication: TEMPOROMANDIBULAR JOINT SYNDROME
     Dosage: SEE IMAGE
     Route: 048
     Dates: start: 20020101, end: 20020101
  16. EFFEXOR XR [Suspect]
     Indication: TINNITUS
     Dosage: SEE IMAGE
     Route: 048
     Dates: start: 20020101, end: 20020101
  17. EFFEXOR XR [Suspect]
     Indication: AGITATION
     Dosage: SEE IMAGE
     Route: 048
     Dates: start: 20020101, end: 20020101
  18. EFFEXOR XR [Suspect]
     Indication: ANXIETY
     Dosage: SEE IMAGE
     Route: 048
     Dates: start: 20020101, end: 20020101
  19. EFFEXOR XR [Suspect]
     Indication: TEMPOROMANDIBULAR JOINT SYNDROME
     Dosage: SEE IMAGE
     Route: 048
     Dates: start: 20020101, end: 20020101
  20. EFFEXOR XR [Suspect]
     Indication: TINNITUS
     Dosage: SEE IMAGE
     Route: 048
     Dates: start: 20020101, end: 20020101
  21. EFFEXOR [Suspect]
     Indication: AGITATION
     Dosage: ORAL
     Route: 048
     Dates: start: 20020101, end: 20030401
  22. EFFEXOR [Suspect]
     Indication: ANXIETY
     Dosage: ORAL
     Route: 048
     Dates: start: 20020101, end: 20030401
  23. EFFEXOR [Suspect]
     Indication: TEMPOROMANDIBULAR JOINT SYNDROME
     Dosage: ORAL
     Route: 048
     Dates: start: 20020101, end: 20030401
  24. EFFEXOR [Suspect]
     Indication: TINNITUS
     Dosage: ORAL
     Route: 048
     Dates: start: 20020101, end: 20030401
  25. SYNTHROID [Concomitant]
  26. NORPACE - SLOW RELEASE (DISOPYRAMIDE PHOSPHATE) [Concomitant]
  27. ATENOLOL [Concomitant]
  28. LANOXIN (DIGOSIN) [Concomitant]
  29. CLORAZEPATE (CLORAZEPATE DIPOASSIUM) [Concomitant]
  30. ELAVIL [Concomitant]
  31. TRAZODONE (TRAZODONE) [Concomitant]

REACTIONS (15)
  - ABNORMAL DREAMS [None]
  - CONSTIPATION [None]
  - CONVULSION [None]
  - DIARRHOEA [None]
  - DRUG INEFFECTIVE [None]
  - DRUG INTERACTION [None]
  - DRUG WITHDRAWAL SYNDROME [None]
  - DYSGEUSIA [None]
  - FEELING ABNORMAL [None]
  - HYPOAESTHESIA [None]
  - IMPAIRED WORK ABILITY [None]
  - INSOMNIA [None]
  - MUSCLE TWITCHING [None]
  - TINNITUS [None]
  - UNEVALUABLE EVENT [None]
